FAERS Safety Report 5144686-5 (Version None)
Quarter: 2006Q4

REPORT INFORMATION
  Report Type: 
  Country: None (occurrence: None)
  Receive Date: 20061031
  Receipt Date: 20061019
  Transmission Date: 20070319
  Serious: Yes (Hospitalization)
  Sender: FDA-Public Use
  Company Number: 2006PV022183

PATIENT
  Age: 51 Year
  Sex: Female
  Weight: 95.2554 kg

DRUGS (8)
  1. BYETTA [Suspect]
     Indication: DIABETES MELLITUS NON-INSULIN-DEPENDENT
     Dosage: 10 MCG BID SC ; 10 MCG QPM SC ; 5 MCG QAM SC ; 5 MCG BID SC ; 5 MCG QD SC
     Route: 058
     Dates: start: 20060401, end: 20060501
  2. BYETTA [Suspect]
     Indication: DIABETES MELLITUS NON-INSULIN-DEPENDENT
     Dosage: 10 MCG BID SC ; 10 MCG QPM SC ; 5 MCG QAM SC ; 5 MCG BID SC ; 5 MCG QD SC
     Route: 058
     Dates: start: 20060501, end: 20060601
  3. BYETTA [Suspect]
     Indication: DIABETES MELLITUS NON-INSULIN-DEPENDENT
     Dosage: 10 MCG BID SC ; 10 MCG QPM SC ; 5 MCG QAM SC ; 5 MCG BID SC ; 5 MCG QD SC
     Route: 058
     Dates: start: 20060601, end: 20060701
  4. BYETTA [Suspect]
     Indication: DIABETES MELLITUS NON-INSULIN-DEPENDENT
     Dosage: 10 MCG BID SC ; 10 MCG QPM SC ; 5 MCG QAM SC ; 5 MCG BID SC ; 5 MCG QD SC
     Route: 058
     Dates: start: 20060601, end: 20060701
  5. BYETTA [Suspect]
     Indication: DIABETES MELLITUS NON-INSULIN-DEPENDENT
     Dosage: 10 MCG BID SC ; 10 MCG QPM SC ; 5 MCG QAM SC ; 5 MCG BID SC ; 5 MCG QD SC
     Route: 058
     Dates: start: 20060701, end: 20060927
  6. AMARYL [Concomitant]
  7. AVANDIA [Concomitant]
  8. ALTACE [Concomitant]

REACTIONS (15)
  - ABDOMINAL PAIN UPPER [None]
  - BLOOD GLUCOSE FLUCTUATION [None]
  - COLON ADENOMA [None]
  - CORONARY ARTERY OCCLUSION [None]
  - DRUG DOSE OMISSION [None]
  - INJECTION SITE ERYTHEMA [None]
  - INJECTION SITE NODULE [None]
  - INJECTION SITE PRURITUS [None]
  - INJECTION SITE REACTION [None]
  - INTESTINAL MASS [None]
  - LYMPHADENOPATHY [None]
  - NAUSEA [None]
  - SELF-MEDICATION [None]
  - UNEVALUABLE EVENT [None]
  - VOMITING [None]
